FAERS Safety Report 7582493 (Version 7)
Quarter: 2013Q4

REPORT INFORMATION
  Report Type: Spontaneous
  Country: AT (occurrence: AT)
  Receive Date: 20100913
  Receipt Date: 20131122
  Transmission Date: 20140711
  Serious: Yes (Other)
  Sender: FDA-Public Use
  Company Number: PHHY2010AT35575

PATIENT
  Age: 66 Year
  Sex: Female
  Weight: 70 kg

DRUGS (2)
  1. TASIGNA [Suspect]
     Indication: CHRONIC MYELOID LEUKAEMIA
     Dosage: 800 MG, BID
     Route: 048
     Dates: start: 20070202, end: 20131114
  2. ACECOMB [Concomitant]
     Indication: HYPERTENSION

REACTIONS (8)
  - Peripheral arterial occlusive disease [Not Recovered/Not Resolved]
  - Intermittent claudication [Unknown]
  - Femoral artery occlusion [Unknown]
  - Peripheral artery stenosis [Unknown]
  - Diabetes mellitus [Not Recovered/Not Resolved]
  - Weight decreased [Unknown]
  - Lipase increased [Unknown]
  - Blood lactate dehydrogenase increased [Unknown]
